FAERS Safety Report 9055975 (Version 1)
Quarter: 2013Q1

REPORT INFORMATION
  Report Type: Spontaneous
  Country: BR (occurrence: BR)
  Receive Date: 20130205
  Receipt Date: 20130205
  Transmission Date: 20140127
  Serious: Yes (Hospitalization)
  Sender: FDA-Public Use
  Company Number: PHHY2013BR010304

PATIENT
  Age: 78 Year
  Sex: Female

DRUGS (5)
  1. DIOVAN HCT [Suspect]
     Indication: HYPERTENSION
     Dosage: 1 DF, (320 MG VALS/ 12,5 MG HYDRO) DAILY
     Route: 048
  2. DIOVAN HCT [Suspect]
     Dosage: 1 DF, (320 MG VALS/ 25 MG HYDRO)
     Route: 048
  3. LOSARTAN [Suspect]
  4. SIMVASTATIN [Suspect]
  5. HYDROCHLOROTHIAZIDE [Suspect]

REACTIONS (1)
  - Infarction [Recovering/Resolving]
